FAERS Safety Report 11753711 (Version 4)
Quarter: 2016Q2

REPORT INFORMATION
  Report Type: Spontaneous
  Country: US (occurrence: US)
  Receive Date: 20151119
  Receipt Date: 20160616
  Transmission Date: 20160815
  Serious: Yes (Other)
  Sender: FDA-Public Use
  Company Number: US-ASTRAZENECA-2012SE74501

PATIENT
  Age: 66 Year
  Sex: Female
  Weight: 72.6 kg

DRUGS (28)
  1. CRESTOR [Suspect]
     Active Substance: ROSUVASTATIN CALCIUM
     Indication: BLOOD CHOLESTEROL INCREASED
     Dosage: 10.0MG UNKNOWN
     Route: 048
     Dates: start: 20130624
  2. IRON [Concomitant]
     Active Substance: IRON
  3. ZYRTEC [Concomitant]
     Active Substance: CETIRIZINE HYDROCHLORIDE
  4. JANUMET [Concomitant]
     Active Substance: METFORMIN HYDROCHLORIDE\SITAGLIPTIN PHOSPHATE
  5. ASPIRIN. [Concomitant]
     Active Substance: ASPIRIN
  6. CLONIDINE HCL [Concomitant]
     Active Substance: CLONIDINE HYDROCHLORIDE
     Dosage: 0.1MG UNKNOWN
  7. PRANDIN [Concomitant]
     Active Substance: REPAGLINIDE
     Dosage: 2.0MG UNKNOWN
  8. FUROSEMIDE. [Concomitant]
     Active Substance: FUROSEMIDE
  9. CRESTOR [Suspect]
     Active Substance: ROSUVASTATIN CALCIUM
     Indication: BLOOD CHOLESTEROL INCREASED
     Dosage: 10.0MG UNKNOWN
     Route: 048
     Dates: start: 20060202
  10. CRESTOR [Suspect]
     Active Substance: ROSUVASTATIN CALCIUM
     Indication: BLOOD CHOLESTEROL INCREASED
     Dosage: 10.0MG UNKNOWN
     Route: 048
     Dates: start: 20090717
  11. AMARYL [Concomitant]
     Active Substance: GLIMEPIRIDE
     Dosage: 4.0MG UNKNOWN
  12. METOPROLOL TARTRATE. [Concomitant]
     Active Substance: METOPROLOL TARTRATE
     Dosage: 50.0MG UNKNOWN
  13. TEKTURNA [Concomitant]
     Active Substance: ALISKIREN HEMIFUMARATE
  14. PLAVIX [Concomitant]
     Active Substance: CLOPIDOGREL BISULFATE
  15. PROTONIX [Concomitant]
     Active Substance: PANTOPRAZOLE SODIUM
  16. BENAZEPRIL [Concomitant]
     Active Substance: BENAZEPRIL HYDROCHLORIDE
  17. ACTOS [Concomitant]
     Active Substance: PIOGLITAZONE HYDROCHLORIDE
     Dosage: 45.0MG UNKNOWN
  18. ALPRAZOLAM. [Concomitant]
     Active Substance: ALPRAZOLAM
     Dosage: 0.25MG UNKNOWN
  19. ATARAX [Concomitant]
     Active Substance: HYDROXYZINE\HYDROXYZINE HYDROCHLORIDE
     Route: 048
  20. AMLODIPINE [Concomitant]
     Active Substance: AMLODIPINE BESYLATE
  21. HYDROCHLOROTHIAZIDE. [Concomitant]
     Active Substance: HYDROCHLOROTHIAZIDE
  22. TOPROL XL [Concomitant]
     Active Substance: METOPROLOL SUCCINATE
  23. GLUCOPHAGE [Concomitant]
     Active Substance: METFORMIN HYDROCHLORIDE
     Dosage: 1000.0MG UNKNOWN
  24. JANUVIA [Concomitant]
     Active Substance: SITAGLIPTIN PHOSPHATE
  25. DIOVAN [Concomitant]
     Active Substance: VALSARTAN
     Dosage: 320.0MG UNKNOWN
  26. NEXIUM [Concomitant]
     Active Substance: ESOMEPRAZOLE MAGNESIUM
     Dosage: 40.0MG UNKNOWN
     Dates: start: 20090610
  27. LIPITOR [Concomitant]
     Active Substance: ATORVASTATIN CALCIUM
     Dosage: 10.0MG UNKNOWN
  28. NOVOLOG [Concomitant]
     Active Substance: INSULIN ASPART

REACTIONS (13)
  - Cardiac failure congestive [Unknown]
  - Type 2 diabetes mellitus [Unknown]
  - Blood triglycerides increased [Unknown]
  - Lacunar infarction [Unknown]
  - Angina pectoris [Unknown]
  - Coronary artery disease [Unknown]
  - Arrhythmia [Unknown]
  - Cardiovascular disorder [Unknown]
  - Cardiomyopathy [Unknown]
  - Myocardial infarction [Unknown]
  - Diabetic neuropathy [Unknown]
  - Hypertension [Unknown]
  - Obesity [Unknown]

NARRATIVE: CASE EVENT DATE: 2007
